FAERS Safety Report 17783081 (Version 1)
Quarter: 2020Q2

REPORT INFORMATION
  Report Type: Spontaneous
  Country: DE (occurrence: DE)
  Receive Date: 20200514
  Receipt Date: 20200514
  Transmission Date: 20200714
  Serious: Yes (Life-Threatening, Hospitalization, Other)
  Sender: FDA-Public Use
  Company Number: DE-ACCORD-181357

PATIENT
  Age: 89 Year
  Sex: Female

DRUGS (11)
  1. APIXABAN [Concomitant]
     Active Substance: APIXABAN
     Dosage: 1-0-1, ONE DOSE IN THE MORNING
  2. SIMVASTATIN. [Concomitant]
     Active Substance: SIMVASTATIN
     Dosage: STRENGTH:20 MG  0-0-1, AT NIGHT
  3. BISOPROLOL [Concomitant]
     Active Substance: BISOPROLOL
     Dosage: STRENGTH:5 MG ,1-0-0, TAKE IN MORNING
  4. ALLOPURINOL. [Suspect]
     Active Substance: ALLOPURINOL
     Indication: HYPERURICAEMIA
  5. AMLODIPINE [Concomitant]
     Active Substance: AMLODIPINE BESYLATE
     Dosage: 1-0-1, ONE DOSE IN THE MORNING
  6. RAMIPRIL. [Concomitant]
     Active Substance: RAMIPRIL
     Dosage: 1-0-1, ONE DOSE IN THE MORNING
  7. TORASEMIDE [Concomitant]
     Active Substance: TORSEMIDE
     Dosage: STRENGTH:20 MG 1-0-0, TAKE IN MORNING
  8. ALLOPURINOL. [Suspect]
     Active Substance: ALLOPURINOL
     Indication: GOUT
  9. ACETYLSALICYLIC ACID [Concomitant]
     Active Substance: ASPIRIN
     Dosage: STRENGTH:100 MG ,0-1-0, IN AFTERNOON
  10. RANOLAZINE/RANOLAZINE HYDROCHLORIDE [Concomitant]
     Active Substance: RANOLAZINE HYDROCHLORIDE
     Dosage: 1-0-1, ONE DOSE IN THE MORNING
  11. BETAHISTINE [Concomitant]
     Active Substance: BETAHISTINE
     Dosage: STRENGTH:12 MG1-0-0, TAKE IN MORNING

REACTIONS (7)
  - Pulmonary congestion [Unknown]
  - Depressed level of consciousness [Unknown]
  - Pleural effusion [Unknown]
  - Pneumonia [Unknown]
  - General physical health deterioration [Unknown]
  - Stevens-Johnson syndrome [Unknown]
  - Cardiomegaly [Unknown]
